FAERS Safety Report 8557414-8 (Version None)
Quarter: 2012Q3

REPORT INFORMATION
  Report Type: 
  Country: None (occurrence: None)
  Receive Date: 20120801
  Receipt Date: 20120725
  Transmission Date: 20120928
  Serious: Yes (Other)
  Sender: FDA-Public Use
  Company Number: CA-ABBOTT-12P-028-0917413-00

PATIENT
  Sex: Female

DRUGS (2)
  1. HUMIRA [Suspect]
     Indication: PRODUCT USED FOR UNKNOWN INDICATION
     Route: 058
  2. REMICADE [Suspect]
     Indication: PRODUCT USED FOR UNKNOWN INDICATION
     Route: 042

REACTIONS (13)
  - INFUSION RELATED REACTION [None]
  - FATIGUE [None]
  - SOMNOLENCE [None]
  - RECTAL FISSURE [None]
  - SKIN TIGHTNESS [None]
  - DYSPNOEA [None]
  - EAR DISORDER [None]
  - FLUSHING [None]
  - OEDEMA PERIPHERAL [None]
  - ANAL FISTULA [None]
  - RECTAL STENOSIS [None]
  - PRURITUS [None]
  - RASH [None]
